FAERS Safety Report 15838451 (Version 2)
Quarter: 2019Q2

REPORT INFORMATION
  Report Type: Spontaneous
  Country: US (occurrence: US)
  Receive Date: 20190117
  Receipt Date: 20190523
  Transmission Date: 20190711
  Serious: Yes (Other)
  Sender: FDA-Public Use
  Company Number: PHHY2019US003368

PATIENT
  Age: 6 Year
  Sex: Male

DRUGS (4)
  1. HYDROCORTISONE. [Suspect]
     Active Substance: HYDROCORTISONE
     Indication: DERMATOSIS
  2. BETAMETHASONE. [Suspect]
     Active Substance: BETAMETHASONE
     Indication: ECZEMA NUMMULAR
     Dosage: UNK
     Route: 061
  3. HYDROCORTISONE. [Suspect]
     Active Substance: HYDROCORTISONE
     Indication: ECZEMA NUMMULAR
     Dosage: UNK, BID
     Route: 061
     Dates: start: 2018
  4. TRIAMCINOLONE [Suspect]
     Active Substance: TRIAMCINOLONE
     Indication: ECZEMA NUMMULAR
     Dosage: UNK
     Route: 061

REACTIONS (3)
  - Drug dependence [Recovered/Resolved]
  - Shared psychotic disorder [Unknown]
  - Withdrawal syndrome [Unknown]
